FAERS Safety Report 13355004 (Version 2)
Quarter: 2018Q2

REPORT INFORMATION
  Report Type: Report from Study
  Country: PA (occurrence: PA)
  Receive Date: 20170321
  Receipt Date: 20180629
  Transmission Date: 20180711
  Serious: Yes (Other)
  Sender: FDA-Public Use
  Company Number: PHHY2017PA041654

PATIENT
  Age: 57 Year
  Sex: Male

DRUGS (1)
  1. EXJADE [Suspect]
     Active Substance: DEFERASIROX
     Indication: MYELOFIBROSIS
     Dosage: 1 DF, QD
     Route: 048
     Dates: end: 20170313

REACTIONS (2)
  - Blood iron increased [Unknown]
  - Graft versus host disease [Unknown]
